FAERS Safety Report 7885487-4 (Version None)
Quarter: 2011Q4

REPORT INFORMATION
  Report Type: 
  Country: None (occurrence: None)
  Receive Date: 20111102
  Receipt Date: 20111024
  Transmission Date: 20120403
  Serious: Yes (Hospitalization)
  Sender: FDA-Public Use
  Company Number: US-ASTRAZENECA-2011SE26976

PATIENT
  Age: 51 Year
  Sex: Male

DRUGS (6)
  1. PRILOSEC [Suspect]
     Route: 048
  2. NEXIUM [Suspect]
     Route: 048
     Dates: start: 20070101
  3. OVER THE COUNTER MEDICATIONS [Concomitant]
  4. NEXIUM [Suspect]
     Route: 048
  5. NEXIUM [Suspect]
     Route: 048
  6. NEXIUM [Suspect]
     Indication: ULCER HAEMORRHAGE
     Dosage: GENERIC
     Route: 048

REACTIONS (3)
  - DRUG PRESCRIBING ERROR [None]
  - THERAPY REGIMEN CHANGED [None]
  - RASH [None]
